FAERS Safety Report 13266026 (Version 2)
Quarter: 2017Q2

REPORT INFORMATION
  Report Type: Spontaneous
  Country: US (occurrence: US)
  Receive Date: 20170223
  Receipt Date: 20170419
  Transmission Date: 20170830
  Serious: No
  Sender: FDA-Public Use
  Company Number: US-GE HEALTHCARE LIFE SCIENCES-2017CSU000043

PATIENT
  Age: 39 Year
  Sex: Female

DRUGS (1)
  1. INDIUM OXINE [Suspect]
     Active Substance: INDIUM IN-111 OXYQUINOLINE
     Indication: BACTERAEMIA
     Dosage: 0.35 MCI, SINGLE
     Route: 042
     Dates: start: 20170213, end: 20170213

REACTIONS (2)
  - Radioisotope scan abnormal [Not Recovered/Not Resolved]
  - Product preparation error [Recovered/Resolved]

NARRATIVE: CASE EVENT DATE: 20170213
